FAERS Safety Report 18802728 (Version 1)
Quarter: 2021Q1

REPORT INFORMATION
  Report Type: Spontaneous
  Country: US (occurrence: US)
  Receive Date: 20210128
  Receipt Date: 20210128
  Transmission Date: 20210419
  Serious: No
  Sender: FDA-Public Use
  Company Number: US-PERRIGO-20US005055

PATIENT
  Age: 54 Year
  Sex: Male
  Weight: 81.63 kg

DRUGS (1)
  1. TRETINOIN 0.05% CREAM (2L4) [Suspect]
     Active Substance: TRETINOIN
     Indication: ACNE
     Dosage: A LITTLE DAB, QD
     Route: 061
     Dates: start: 20200319, end: 20200402

REACTIONS (1)
  - Drug ineffective [Unknown]

NARRATIVE: CASE EVENT DATE: 20200319
